FAERS Safety Report 8553388-4 (Version None)
Quarter: 2012Q3

REPORT INFORMATION
  Report Type: 
  Country: None (occurrence: None)
  Receive Date: 20120731
  Receipt Date: 20120720
  Transmission Date: 20120928
  Serious: Yes (Hospitalization, Other)
  Sender: FDA-Public Use
  Company Number: DE-ELI_LILLY_AND_COMPANY-DE201207006606

PATIENT
  Sex: Female

DRUGS (6)
  1. OMEPRAZOLE [Concomitant]
  2. HOMEOPATICS NOS [Concomitant]
  3. FORTEO [Suspect]
     Indication: OSTEOPOROSIS
     Dosage: UNK, QD
     Route: 058
     Dates: start: 20111124
  4. MARCUMAR [Concomitant]
  5. DEKRISTOL [Concomitant]
     Dosage: UNK, BID
  6. MORPHINE SULFATE [Concomitant]
     Dosage: 10 MG, BID

REACTIONS (9)
  - RETINAL DETACHMENT [None]
  - INTRAOCULAR PRESSURE INCREASED [None]
  - BLOOD PRESSURE INCREASED [None]
  - VISUAL IMPAIRMENT [None]
  - CARDIOVASCULAR DISORDER [None]
  - ILL-DEFINED DISORDER [None]
  - HEADACHE [None]
  - HEART RATE INCREASED [None]
  - EYE DISORDER [None]
